FAERS Safety Report 14702277 (Version 2)
Quarter: 2018Q2

REPORT INFORMATION
  Report Type: Other
  Country: JP (occurrence: JP)
  Receive Date: 20180401
  Receipt Date: 20180410
  Transmission Date: 20180711
  Serious: Yes (Hospitalization, Other)
  Sender: FDA-Public Use
  Company Number: JP-SHIRE-JP201811270

PATIENT
  Age: 11 Year
  Sex: Female

DRUGS (5)
  1. CICLOSPORIN [Concomitant]
     Active Substance: CYCLOSPORINE
     Indication: KAWASAKI^S DISEASE
     Route: 065
  2. GAMMAGARD S/D [Suspect]
     Active Substance: HUMAN IMMUNOGLOBULIN G
     Indication: KAWASAKI^S DISEASE
     Dosage: 2 TIMES TOTAL 4 G/KG
     Route: 042
  3. INFLIXIMAB RECOMBINANT [Concomitant]
     Active Substance: INFLIXIMAB
     Indication: KAWASAKI^S DISEASE
     Route: 065
  4. ULINASTATIN [Concomitant]
     Active Substance: ULINASTATIN
     Indication: KAWASAKI^S DISEASE
     Route: 065
  5. GAMMAGARD S/D [Suspect]
     Active Substance: HUMAN IMMUNOGLOBULIN G
     Dosage: UNK
     Route: 042

REACTIONS (5)
  - Sjogren^s syndrome [Unknown]
  - Kawasaki^s disease [Recovered/Resolved]
  - Arthritis [Unknown]
  - Parotid gland enlargement [Unknown]
  - Antinuclear antibody positive [Recovered/Resolved]
